FAERS Safety Report 8921007 (Version 1)
Quarter: 2012Q4

REPORT INFORMATION
  Report Type: 
  Country: GR (occurrence: GR)
  Receive Date: 20121121
  Receipt Date: 20121121
  Transmission Date: 20130627
  Serious: Yes (Hospitalization, Other)
  Sender: FDA-Public Use
  Company Number: GR-ELI_LILLY_AND_COMPANY-GR201211004456

PATIENT
  Age: 34 Year
  Sex: Male

DRUGS (2)
  1. OLANZAPINE [Suspect]
     Dosage: 25 mg, qd
  2. DIAZEPAM [Concomitant]
     Indication: DYSTONIA
     Dosage: 20 mg, qd

REACTIONS (3)
  - Torticollis [Recovering/Resolving]
  - Persecutory delusion [Unknown]
  - Anxiety [Unknown]
